FAERS Safety Report 7413031-4 (Version None)
Quarter: 2011Q2

REPORT INFORMATION
  Report Type: 
  Country: None (occurrence: None)
  Receive Date: 20110408
  Receipt Date: 20110408
  Transmission Date: 20111010
  Serious: Yes (Hospitalization, Other)
  Sender: FDA-Public Use
  Company Number: None

PATIENT
  Age: 38 Year
  Sex: Female
  Weight: 90.7194 kg

DRUGS (1)
  1. BOTOX [Suspect]
     Indication: SKIN WRINKLING
     Dosage: 16 UNITS 5 SHOTS CUTANEOUS
     Route: 003
     Dates: start: 20110401, end: 20110401

REACTIONS (5)
  - PHARYNGEAL OEDEMA [None]
  - DYSPHAGIA [None]
  - FEELING ABNORMAL [None]
  - SWOLLEN TONGUE [None]
  - OROPHARYNGEAL DISCOMFORT [None]
